FAERS Safety Report 8976594 (Version 1)
Quarter: 2012Q4

REPORT INFORMATION
  Report Type: 
  Country: CN (occurrence: CN)
  Receive Date: 20121220
  Receipt Date: 20121220
  Transmission Date: 20130627
  Serious: Yes (Death)
  Sender: FDA-Public Use
  Company Number: PHHY2012CN107782

PATIENT
  Age: 71 Year
  Sex: Female
  Weight: 50 kg

DRUGS (1)
  1. LESCOL [Suspect]
     Indication: MYOCARDIAL INFARCTION
     Dosage: 40 mg, QD
     Route: 048
     Dates: start: 20090505, end: 20090507

REACTIONS (3)
  - Rhabdomyolysis [Fatal]
  - Liver function test abnormal [Fatal]
  - Renal function test abnormal [Fatal]
